FAERS Safety Report 5765041-0 (Version None)
Quarter: 2008Q2

REPORT INFORMATION
  Report Type: 
  Country: None (occurrence: None)
  Receive Date: 20080611
  Receipt Date: 20080603
  Transmission Date: 20081010
  Serious: Yes (Other)
  Sender: FDA-Public Use
  Company Number: US-ASTRAZENECA-2008UW11190

PATIENT
  Age: 23048 Day
  Sex: Female
  Weight: 76.2 kg

DRUGS (2)
  1. CRESTOR [Suspect]
     Indication: HYPERCHOLESTEROLAEMIA
     Route: 048
     Dates: start: 20080530
  2. CRESTOR [Suspect]
     Route: 048
     Dates: start: 20080531

REACTIONS (4)
  - DRY MOUTH [None]
  - INTENTIONAL DRUG MISUSE [None]
  - RASH [None]
  - THROAT TIGHTNESS [None]
